FAERS Safety Report 11741452 (Version 3)
Quarter: 2016Q3

REPORT INFORMATION
  Report Type: Report from Study
  Country: US (occurrence: US)
  Receive Date: 20151116
  Receipt Date: 20160720
  Transmission Date: 20161109
  Serious: Yes (Other)
  Sender: FDA-Public Use
  Company Number: US-AMGEN-USASP2015120316

PATIENT
  Age: 67 Year
  Sex: Female

DRUGS (2)
  1. ENBREL [Suspect]
     Active Substance: ETANERCEPT
     Indication: RHEUMATOID ARTHRITIS
     Dosage: 50 MG, QWK
     Route: 065
     Dates: start: 20140110, end: 2015
  2. ENBREL [Suspect]
     Active Substance: ETANERCEPT
     Dosage: 50 MG, QWK
     Route: 065
     Dates: start: 2015

REACTIONS (7)
  - Cough [Unknown]
  - Arthralgia [Unknown]
  - Oropharyngeal pain [Unknown]
  - Knee arthroplasty [Unknown]
  - Surgery [Unknown]
  - Weight decreased [Unknown]
  - Dysphonia [Unknown]

NARRATIVE: CASE EVENT DATE: 2015
